FAERS Safety Report 7025394-2 (Version None)
Quarter: 2010Q4

REPORT INFORMATION
  Report Type: 
  Country: None (occurrence: None)
  Receive Date: 20101001
  Receipt Date: 20100922
  Transmission Date: 20110411
  Serious: Yes (Other)
  Sender: FDA-Public Use
  Company Number: PHHY2010CA51183

PATIENT
  Sex: Female

DRUGS (1)
  1. ACLASTA [Suspect]
     Indication: OSTEOPOROSIS
     Dosage: UNK
     Route: 042
     Dates: start: 20091021

REACTIONS (5)
  - COMPRESSION FRACTURE [None]
  - FALL [None]
  - MUSCLE STRAIN [None]
  - SPINAL FRACTURE [None]
  - UPPER LIMB FRACTURE [None]
